FAERS Safety Report 12642810 (Version 1)
Quarter: 2016Q3

REPORT INFORMATION
  Report Type: Spontaneous
  Country: US (occurrence: US)
  Receive Date: 20160811
  Receipt Date: 20160811
  Transmission Date: 20161109
  Serious: No
  Sender: FDA-Public Use
  Company Number: US-JNJFOC-20160711076

PATIENT
  Age: 76 Year
  Sex: Female

DRUGS (3)
  1. PEPCID AC [Suspect]
     Active Substance: FAMOTIDINE
     Route: 048
  2. PEPCID AC [Suspect]
     Active Substance: FAMOTIDINE
     Indication: GASTROOESOPHAGEAL REFLUX DISEASE
     Dosage: ONE 10MG TABLET
     Route: 048
  3. KLOR-CON [Concomitant]
     Active Substance: POTASSIUM CHLORIDE
     Indication: BLOOD POTASSIUM
     Dosage: YEARS
     Route: 065

REACTIONS (3)
  - Product use issue [Unknown]
  - Off label use [Unknown]
  - Product packaging issue [Unknown]
